FAERS Safety Report 8236894-1 (Version None)
Quarter: 2012Q1

REPORT INFORMATION
  Report Type: 
  Country: None (occurrence: None)
  Receive Date: 20120327
  Receipt Date: 20110908
  Transmission Date: 20120608
  Serious: No
  Sender: FDA-Public Use
  Company Number: US-GLAXOSMITHKLINE-A0943887A

PATIENT
  Age: 57 Year
  Sex: Female

DRUGS (4)
  1. LUXIQ [Suspect]
     Indication: DERMATOSIS
     Dosage: 1APP SEE DOSAGE TEXT
     Route: 061
     Dates: start: 20110601
  2. PROMETRIUM [Concomitant]
  3. PAXIL [Concomitant]
  4. VAGISIL [Concomitant]

REACTIONS (3)
  - TRICHORRHEXIS [None]
  - ALOPECIA [None]
  - HAIR TEXTURE ABNORMAL [None]
